FAERS Safety Report 5303087-7 (Version None)
Quarter: 2007Q1

REPORT INFORMATION
  Report Type: 
  Country: None (occurrence: None)
  Receive Date: 20070201
  Receipt Date: 20061130
  Transmission Date: 20070707
  Serious: No
  Sender: FDA-Public Use
  Company Number: 2006PV026098

PATIENT
  Age: 56 Year
  Sex: Female
  Weight: 98.8842 kg

DRUGS (14)
  1. BYETTA [Suspect]
     Indication: DIABETES MELLITUS NON-INSULIN-DEPENDENT
     Dosage: SEE IMAGE
     Route: 058
     Dates: start: 20060528, end: 20060701
  2. BYETTA [Suspect]
     Indication: DIABETES MELLITUS NON-INSULIN-DEPENDENT
     Dosage: SEE IMAGE
     Route: 058
     Dates: start: 20060701, end: 20060801
  3. LEVEMIR [Concomitant]
  4. GLIPIZIDE [Concomitant]
  5. ACTOS [Concomitant]
  6. DIOVAN HCT [Concomitant]
  7. BUPROPION HYDROCHLORIDE [Concomitant]
  8. TRICOR [Concomitant]
  9. LEVOTHYROXINE SODIUM [Concomitant]
  10. ........ [Concomitant]
  11. ................ [Concomitant]
  12. ......................... [Concomitant]
  13. VERAPAMIL [Concomitant]
  14. URSO FORTE [Concomitant]

REACTIONS (1)
  - WEIGHT DECREASED [None]
